FAERS Safety Report 13925031 (Version 3)
Quarter: 2017Q4

REPORT INFORMATION
  Report Type: Spontaneous
  Country: US (occurrence: US)
  Receive Date: 20170831
  Receipt Date: 20171212
  Transmission Date: 20180320
  Serious: Yes (Disabling, Other)
  Sender: FDA-Public Use
  Company Number: US-REGENERON PHARMACEUTICALS, INC.-2017-20850

PATIENT

DRUGS (5)
  1. EYLEA [Suspect]
     Active Substance: AFLIBERCEPT
     Dosage: 2 MG, EVERY 1-2 MONTHS, LEFT EYE, LAST DOSE
     Route: 031
     Dates: start: 20170802, end: 20170802
  2. VIGAMOX [Concomitant]
     Active Substance: MOXIFLOXACIN HYDROCHLORIDE
     Indication: PRODUCT USED FOR UNKNOWN INDICATION
     Dosage: UNK
  3. PREDNISOLONE                       /00016202/ [Concomitant]
     Active Substance: PREDNISOLONE
     Indication: PRODUCT USED FOR UNKNOWN INDICATION
     Dosage: UNK
  4. EYLEA [Suspect]
     Active Substance: AFLIBERCEPT
     Indication: NEOVASCULAR AGE-RELATED MACULAR DEGENERATION
     Dosage: 2 MG, EVERY 1-2 MONTHS, LEFT EYE
     Route: 031
     Dates: start: 20150309, end: 20170802
  5. EYLEA [Suspect]
     Active Substance: AFLIBERCEPT
     Dosage: 2 MG, LAST DOSE PRIOR TO EVENT
     Dates: start: 20170710, end: 20170710

REACTIONS (8)
  - Retinal haemorrhage [Recovered/Resolved]
  - Detachment of retinal pigment epithelium [Recovered/Resolved]
  - Retinal oedema [Recovered/Resolved]
  - Blindness transient [Recovered/Resolved]
  - Eye inflammation [Recovered/Resolved]
  - Hypopyon [Recovered/Resolved]
  - Subretinal fluid [Recovered/Resolved]
  - Eye pain [Recovered/Resolved]

NARRATIVE: CASE EVENT DATE: 20170802
